FAERS Safety Report 5145365-0 (Version None)
Quarter: 2006Q4

REPORT INFORMATION
  Report Type: 
  Country: None (occurrence: None)
  Receive Date: 20061101
  Receipt Date: 20061023
  Transmission Date: 20070319
  Serious: No
  Sender: FDA-Public Use
  Company Number: 2006-149644-NL

PATIENT
  Age: 73 Year
  Sex: Female

DRUGS (2)
  1. MIRTAZAPINE [Suspect]
     Dosage: 15 MG ORAL
     Route: 048
     Dates: start: 20051101, end: 20060809
  2. TEMAZEPAM [Concomitant]

REACTIONS (4)
  - ANXIETY [None]
  - DECREASED APPETITE [None]
  - DEPRESSED MOOD [None]
  - DRUG WITHDRAWAL SYNDROME [None]
